FAERS Safety Report 8481148-1 (Version None)
Quarter: 2012Q3

REPORT INFORMATION
  Report Type: 
  Country: None (occurrence: None)
  Receive Date: 20120702
  Receipt Date: 20120625
  Transmission Date: 20120928
  Serious: Yes (Other)
  Sender: FDA-Public Use
  Company Number: PHHY2012JP026087

PATIENT
  Sex: Female
  Weight: 69 kg

DRUGS (21)
  1. RHUMAB-E25 [Suspect]
     Indication: ASTHMA
     Dosage: 375 MG, QW2
     Route: 058
     Dates: start: 20120127
  2. SYMBICORT [Concomitant]
     Indication: ASTHMA
  3. HOKUNALIN [Concomitant]
     Indication: ASTHMA
  4. RIZABEN [Concomitant]
     Indication: ASTHMA
  5. RABEPRAZOLE SODIUM [Concomitant]
  6. NEORAL [Suspect]
     Route: 048
  7. PREDNISOLONE [Concomitant]
     Indication: ASTHMA
  8. ZOLPIDEM [Concomitant]
  9. TRICHLORMETHIAZIDE [Concomitant]
  10. PROCATEROL HCL [Concomitant]
     Indication: ASTHMA
  11. DEPAS [Concomitant]
  12. CLOSTRIDIUM BUTYRICUM [Concomitant]
  13. RHUMAB-E25 [Suspect]
     Dosage: UNK
     Dates: start: 20120223
  14. SINGULAIR [Concomitant]
     Indication: ASTHMA
  15. BAKTAR [Concomitant]
  16. HIRUDOID [Concomitant]
  17. RHUMAB-E25 [Suspect]
     Dosage: UNK
     Dates: start: 20120209
  18. RHUMAB-E25 [Suspect]
     Dosage: UNK
     Dates: start: 20120308, end: 20120308
  19. PULMICORT [Concomitant]
     Indication: ASTHMA
  20. EPINASTINE HYDROCHLORIDE [Concomitant]
     Indication: ASTHMA
  21. IPD [Concomitant]
     Indication: ASTHMA

REACTIONS (3)
  - LARYNGEAL OEDEMA [None]
  - FEELING ABNORMAL [None]
  - ANAPHYLACTIC REACTION [None]
